FAERS Safety Report 8186365-6 (Version None)
Quarter: 2012Q1

REPORT INFORMATION
  Report Type: 
  Country: None (occurrence: None)
  Receive Date: 20120306
  Receipt Date: 20120227
  Transmission Date: 20120608
  Serious: Yes (Hospitalization)
  Sender: FDA-Public Use
  Company Number: BR-US-EMD SERONO, INC.-7115892

PATIENT
  Sex: Male

DRUGS (2)
  1. REBIF [Suspect]
     Indication: RELAPSING-REMITTING MULTIPLE SCLEROSIS
     Dates: start: 20070101
  2. CARBAMAZEPINE [Concomitant]
     Indication: TRIGEMINAL NEURALGIA

REACTIONS (5)
  - ASTHENIA [None]
  - HYPERSOMNIA [None]
  - BALANCE DISORDER [None]
  - FACIAL PAIN [None]
  - GAIT DISTURBANCE [None]
